FAERS Safety Report 5127548-9 (Version None)
Quarter: 2006Q4

REPORT INFORMATION
  Report Type: 
  Country: None (occurrence: None)
  Receive Date: 20061011
  Receipt Date: 20060929
  Transmission Date: 20070319
  Serious: Yes (Other)
  Sender: FDA-Public Use
  Company Number: 14874

PATIENT
  Age: 69 Year
  Sex: Male

DRUGS (1)
  1. AMIODARONE HCL [Suspect]
     Indication: CARDIOMYOPATHY
     Dates: start: 20030801

REACTIONS (7)
  - AUTOANTIBODY POSITIVE [None]
  - BLOOD IMMUNOGLOBULIN A INCREASED [None]
  - BLOOD IMMUNOGLOBULIN G DECREASED [None]
  - CONDITION AGGRAVATED [None]
  - DISEASE RECURRENCE [None]
  - HYPERTHYROIDISM [None]
  - NORMOCHROMIC NORMOCYTIC ANAEMIA [None]
